FAERS Safety Report 7339106-6 (Version None)
Quarter: 2011Q1

REPORT INFORMATION
  Report Type: 
  Country: None (occurrence: None)
  Receive Date: 20110308
  Receipt Date: 20110303
  Transmission Date: 20110831
  Serious: Yes (Other)
  Sender: FDA-Public Use
  Company Number: JP-ABBOTT-11P-087-0709749-00

PATIENT
  Age: 81 Year
  Sex: Male

DRUGS (1)
  1. LEUPLIN DEPOT [Suspect]
     Indication: PROSTATE CANCER
     Route: 058

REACTIONS (1)
  - LUNG DISORDER [None]
